FAERS Safety Report 4402077-6 (Version None)
Quarter: 2004Q3

REPORT INFORMATION
  Report Type: 
  Country: None (occurrence: None)
  Receive Date: 20040719
  Receipt Date: 20040719
  Transmission Date: 20050211
  Serious: Yes (Hospitalization)
  Sender: FDA-Public Use
  Company Number: None

PATIENT
  Age: 35 Year
  Sex: Female
  Weight: 67.1324 kg

DRUGS (1)
  1. DEPO-PROVERA [Suspect]
     Indication: CONTRACEPTION
     Dates: start: 20040528, end: 20040930

REACTIONS (6)
  - EPISTAXIS [None]
  - EYE REDNESS [None]
  - MENORRHAGIA [None]
  - METRORRHAGIA [None]
  - MOOD ALTERED [None]
  - WEIGHT INCREASED [None]
